FAERS Safety Report 18953179 (Version 3)
Quarter: 2021Q2

REPORT INFORMATION
  Report Type: Spontaneous
  Country: AU (occurrence: AU)
  Receive Date: 20210301
  Receipt Date: 20210629
  Transmission Date: 20210717
  Serious: Yes (Hospitalization)
  Sender: FDA-Public Use
  Company Number: AU-NOVOPROD-791016

PATIENT
  Age: 78 Year
  Sex: Male
  Weight: 62 kg

DRUGS (6)
  1. GANFORT [Concomitant]
     Active Substance: BIMATOPROST\TIMOLOL
     Indication: GLAUCOMA
     Dosage: 2 DROPS EACH EYE DAILY
     Route: 065
  2. FIASP [Suspect]
     Active Substance: INSULIN ASPART
     Indication: TYPE 1 DIABETES MELLITUS
     Dosage: 22 IU, QD (7 UNITS, 7 UNITS, 8 UNITS)
     Route: 058
     Dates: start: 202002
  3. AZOPT [Concomitant]
     Active Substance: BRINZOLAMIDE
     Indication: GLAUCOMA
     Dosage: 2 DROPS EACH EYE DAILY
     Route: 065
  4. LANTUS [Concomitant]
     Active Substance: INSULIN GLARGINE
     Dosage: 4U [4 UNITS] + 4.5U PM [4.5 UNITS IN THE AFTERNOON]
     Route: 065
  5. DUODART [Concomitant]
     Active Substance: DUTASTERIDE\TAMSULOSIN
     Indication: URINE ABNORMALITY
     Dosage: UNK
  6. PRAVASTATIN. [Concomitant]
     Active Substance: PRAVASTATIN
     Indication: TYPE 1 DIABETES MELLITUS
     Dosage: 10 MG, QD
     Route: 048
     Dates: start: 2017

REACTIONS (2)
  - Fracture [Unknown]
  - Lower limb fracture [Unknown]
